FAERS Safety Report 8823781 (Version 5)
Quarter: 2016Q2

REPORT INFORMATION
  Report Type: Spontaneous
  Country: US (occurrence: US)
  Receive Date: 20121003
  Receipt Date: 20160621
  Transmission Date: 20160815
  Serious: Yes (Hospitalization, Other)
  Sender: FDA-Public Use
  Company Number: US-ASTRAZENECA-2012SE57733

PATIENT
  Age: 998 Month
  Sex: Female
  Weight: 46.7 kg

DRUGS (16)
  1. CARDIAC THERAPY [Concomitant]
     Active Substance: UNSPECIFIED INGREDIENT
     Indication: CARDIAC DISORDER
  2. NITROGLYCERIN. [Concomitant]
     Active Substance: NITROGLYCERIN
     Dosage: AS REQUIRED
  3. ERGOT [Concomitant]
     Active Substance: ERGOLOID MESYLATES
     Indication: LIVER DISORDER
     Dosage: 27 MG
     Route: 048
  4. BISOPROLOL FUMARATE. [Concomitant]
     Active Substance: BISOPROLOL FUMARATE
     Indication: BLOOD PRESSURE ABNORMAL
     Dosage: 5 MG DAILY, 1 AND ONE QUERTER MGS
     Route: 048
     Dates: start: 201506
  5. PROBIOTIC [Concomitant]
     Active Substance: PROBIOTICS NOS
     Dosage: DAILY
     Route: 048
  6. COQ10 [Concomitant]
     Active Substance: UBIDECARENONE
     Route: 048
  7. PREDNISOLONE. [Concomitant]
     Active Substance: PREDNISOLONE
  8. BRILINTA [Suspect]
     Active Substance: TICAGRELOR
     Indication: MYOCARDIAL INFARCTION
     Route: 048
     Dates: start: 201204
  9. BABY ASPIRIN [Concomitant]
     Active Substance: ASPIRIN
     Route: 048
     Dates: start: 201110
  10. CRESTOR [Suspect]
     Active Substance: ROSUVASTATIN CALCIUM
     Indication: SCAR
     Route: 048
  11. CRESTOR [Suspect]
     Active Substance: ROSUVASTATIN CALCIUM
     Indication: SCAR
     Route: 048
     Dates: start: 201205
  12. OMEGA 369 [Concomitant]
     Active Substance: FISH OIL
     Dosage: DAILY
     Route: 048
  13. PROAIR HFA [Concomitant]
     Active Substance: ALBUTEROL SULFATE
     Indication: PNEUMONIA
     Dosage: FOUR TIMES A DAY 2 PUFFS
     Route: 055
  14. BRILINTA [Suspect]
     Active Substance: TICAGRELOR
     Indication: STENT PLACEMENT
     Route: 048
     Dates: start: 201204
  15. ISOSORBIDE MONO [Concomitant]
     Route: 048
  16. LEVOTHYROXINE. [Concomitant]
     Active Substance: LEVOTHYROXINE
     Indication: IRON DEFICIENCY
     Route: 048

REACTIONS (20)
  - Fatigue [Unknown]
  - Abdominal discomfort [Unknown]
  - Blood pressure increased [Unknown]
  - Chest pain [Unknown]
  - Product use issue [Unknown]
  - Skin discolouration [Unknown]
  - Pneumonia [Unknown]
  - Vascular stent occlusion [Unknown]
  - Upper limb fracture [Unknown]
  - Pain [Unknown]
  - Fall [Unknown]
  - Arthropathy [Unknown]
  - Cough [Unknown]
  - Arterial occlusive disease [Unknown]
  - Oropharyngeal pain [Unknown]
  - Back pain [Unknown]
  - Increased tendency to bruise [Unknown]
  - Blood pressure decreased [Unknown]
  - Weight decreased [Unknown]
  - Body height decreased [Unknown]

NARRATIVE: CASE EVENT DATE: 201205
